FAERS Safety Report 8352655-7 (Version None)
Quarter: 2012Q2

REPORT INFORMATION
  Report Type: 
  Country: None (occurrence: None)
  Receive Date: 20120509
  Receipt Date: 20120430
  Transmission Date: 20120825
  Serious: Yes (Hospitalization, Other)
  Sender: FDA-Public Use
  Company Number: 2012SP023559

PATIENT
  Age: 68 Year
  Sex: Male
  Weight: 80 kg

DRUGS (5)
  1. NEUPOGEN [Concomitant]
  2. VICTRELIS [Suspect]
     Indication: HEPATITIS C
     Dosage: 800 MG;TID
     Dates: start: 20110705, end: 20120321
  3. REBETOL [Suspect]
     Indication: HEPATITIS C
     Dosage: 600 MG;QD
     Dates: start: 20110608, end: 20120321
  4. VIRAFERONPEG [Suspect]
     Indication: HEPATITIS C
     Dosage: 1.5 MCG/KG;QW
     Dates: start: 20110608, end: 20120321
  5. NEORECORMON [Concomitant]

REACTIONS (2)
  - OEDEMA [None]
  - ENCEPHALOPATHY [None]
